FAERS Safety Report 7977441-9 (Version None)
Quarter: 2011Q4

REPORT INFORMATION
  Report Type: 
  Country: None (occurrence: None)
  Receive Date: 20111213
  Receipt Date: 20111116
  Transmission Date: 20120403
  Serious: No
  Sender: FDA-Public Use
  Company Number: US-AMGEN-USASP2011045846

PATIENT
  Sex: Female

DRUGS (4)
  1. LYRICA [Concomitant]
     Dosage: UNK
  2. ENBREL [Suspect]
     Indication: ARTHRITIS
     Dosage: 50 MG, QWK
     Dates: start: 20110601
  3. NEXIUM [Concomitant]
     Dosage: UNK
  4. IBUPROFEN [Concomitant]
     Dosage: 800 MG, TID

REACTIONS (1)
  - THYROID DISORDER [None]
